FAERS Safety Report 13225911 (Version 1)
Quarter: 2017Q1

REPORT INFORMATION
  Report Type: Other
  Country: US (occurrence: US)
  Receive Date: 20170213
  Receipt Date: 20170213
  Transmission Date: 20170428
  Serious: Yes (Hospitalization)
  Sender: FDA-Public Use
  Company Number: US-B. BRAUN MEDICAL INC.-1063015

PATIENT
  Age: 54 Year
  Sex: Male
  Weight: 83 kg

DRUGS (3)
  1. ANTITHYMOCYTE IMMUNOGLOBULIN [Concomitant]
     Active Substance: THYMOCYTE IMMUNE GLOBULIN NOS
     Route: 042
  2. HEPARIN SODIUM IN DEXTROSE [Suspect]
     Active Substance: HEPARIN SODIUM
     Indication: ANTICOAGULANT THERAPY
     Route: 042
  3. ALBUMIN (HUMAN) [Suspect]
     Active Substance: ALBUMIN HUMAN

REACTIONS (1)
  - Antithrombin III deficiency [None]
